FAERS Safety Report 13531269 (Version 4)
Quarter: 2017Q2

REPORT INFORMATION
  Report Type: Spontaneous
  Country: US (occurrence: US)
  Receive Date: 20170510
  Receipt Date: 20170630
  Transmission Date: 20170830
  Serious: Yes (Other)
  Sender: FDA-Public Use
  Company Number: US-PFIZER INC-2017197087

PATIENT
  Age: 16 Year
  Sex: Female
  Weight: 48.73 kg

DRUGS (14)
  1. ZOLOFT [Suspect]
     Active Substance: SERTRALINE HYDROCHLORIDE
     Dosage: 75 MG, UNK
     Route: 048
     Dates: start: 2017, end: 2017
  2. FALMINA [Concomitant]
     Active Substance: ETHINYL ESTRADIOL\LEVONORGESTREL
     Indication: MENSTRUATION IRREGULAR
     Dosage: 1 DF, DAILY
     Dates: start: 201612
  3. CONCERTA [Concomitant]
     Active Substance: METHYLPHENIDATE HYDROCHLORIDE
     Indication: ATTENTION DEFICIT/HYPERACTIVITY DISORDER
  4. ZOLOFT [Suspect]
     Active Substance: SERTRALINE HYDROCHLORIDE
     Indication: ANXIETY
     Dosage: 50 MG, UNK
     Route: 048
     Dates: start: 201606
  5. ZOLOFT [Suspect]
     Active Substance: SERTRALINE HYDROCHLORIDE
     Dosage: 150 MG, DAILY
     Route: 048
     Dates: start: 2017, end: 2017
  6. ZOLOFT [Suspect]
     Active Substance: SERTRALINE HYDROCHLORIDE
     Dosage: 50 MG, UNK
     Route: 048
     Dates: start: 2017, end: 2017
  7. CONCERTA [Concomitant]
     Active Substance: METHYLPHENIDATE HYDROCHLORIDE
     Indication: DISTURBANCE IN ATTENTION
     Dosage: 36 MG, 1X/DAY (EVERY MORNING)
     Route: 048
  8. ZOLOFT [Suspect]
     Active Substance: SERTRALINE HYDROCHLORIDE
     Dosage: 100 MG, 1X/DAY
     Route: 048
     Dates: start: 201609
  9. ZOLOFT [Suspect]
     Active Substance: SERTRALINE HYDROCHLORIDE
     Dosage: 100 MG, UNK
     Route: 048
     Dates: start: 2017, end: 2017
  10. ZOLOFT [Suspect]
     Active Substance: SERTRALINE HYDROCHLORIDE
     Dosage: 125 MG, UNK
     Route: 048
     Dates: start: 2017, end: 2017
  11. ZOLOFT [Suspect]
     Active Substance: SERTRALINE HYDROCHLORIDE
     Dosage: 75 MG, 1X/DAY
     Route: 048
     Dates: start: 201607
  12. ZOLOFT [Suspect]
     Active Substance: SERTRALINE HYDROCHLORIDE
     Dosage: 125 MG, 1X/DAY
     Route: 048
     Dates: start: 201701, end: 2017
  13. ZOLOFT [Suspect]
     Active Substance: SERTRALINE HYDROCHLORIDE
     Dosage: 25 MG, UNK
     Route: 048
     Dates: end: 20170409
  14. ZOLOFT [Suspect]
     Active Substance: SERTRALINE HYDROCHLORIDE
     Indication: DEPRESSION
     Dosage: ^25-50-75MG/ DAY^
     Route: 048
     Dates: start: 20160623

REACTIONS (17)
  - Drug ineffective [Unknown]
  - Vomiting [Recovered/Resolved]
  - Oropharyngeal pain [Unknown]
  - Blood follicle stimulating hormone increased [Unknown]
  - Nausea [Recovered/Resolved]
  - Chills [Recovered/Resolved]
  - Blood luteinising hormone increased [Unknown]
  - Pyrexia [Not Recovered/Not Resolved]
  - Asthenia [Unknown]
  - Cough [Unknown]
  - Gastrointestinal viral infection [Unknown]
  - Withdrawal syndrome [Recovering/Resolving]
  - Polymenorrhoea [Unknown]
  - Loss of personal independence in daily activities [Unknown]
  - Ovarian cyst ruptured [Unknown]
  - Malaise [Unknown]
  - Headache [Recovered/Resolved]

NARRATIVE: CASE EVENT DATE: 2017
